FAERS Safety Report 13350288 (Version 1)
Quarter: 2017Q1

REPORT INFORMATION
  Report Type: Spontaneous
  Country: US (occurrence: US)
  Receive Date: 20170320
  Receipt Date: 20170320
  Transmission Date: 20170429
  Serious: No
  Sender: FDA-Public Use
  Company Number: US-GLAXOSMITHKLINE-US2017036150

PATIENT
  Age: 79 Year
  Sex: Female

DRUGS (1)
  1. ALLI [Suspect]
     Active Substance: ORLISTAT
     Indication: WEIGHT LOSS DIET
     Dosage: 1 DF, QD
     Dates: start: 20170219

REACTIONS (4)
  - Flatulence [Recovered/Resolved]
  - Steatorrhoea [Recovered/Resolved]
  - Faeces discoloured [Recovered/Resolved]
  - Incorrect dose administered [Unknown]
